FAERS Safety Report 8218028-2 (Version None)
Quarter: 2012Q1

REPORT INFORMATION
  Report Type: 
  Country: None (occurrence: None)
  Receive Date: 20120319
  Receipt Date: 20120313
  Transmission Date: 20120608
  Serious: Yes (Death, Hospitalization)
  Sender: FDA-Public Use
  Company Number: JP-PFIZER INC-2012067584

PATIENT
  Age: 70 Year
  Sex: Female
  Weight: 34.7 kg

DRUGS (14)
  1. FERROUS CITRATE SODIUM [Concomitant]
     Dosage: UNK
     Route: 048
     Dates: start: 20090414
  2. TRACLEER [Concomitant]
     Indication: PULMONARY HYPERTENSION
     Dosage: UNK
     Route: 048
  3. FAMOTIDINE [Concomitant]
     Dosage: UNK
     Route: 048
     Dates: end: 20100618
  4. METHYCOBAL [Concomitant]
     Dosage: UNK
     Route: 048
     Dates: end: 20100618
  5. LOXOPROFEN SODIUM [Concomitant]
     Dosage: UNK
     Route: 048
     Dates: start: 20090403
  6. LASIX [Concomitant]
     Dosage: UNK
     Route: 048
     Dates: start: 20090414
  7. MS HOT PACK [Concomitant]
     Dosage: UNK
     Route: 061
     Dates: start: 20090522
  8. MAGNESIUM SULFATE [Concomitant]
     Dosage: UNK
     Route: 048
     Dates: start: 20090407, end: 20100618
  9. NITRAZEPAM [Concomitant]
     Dosage: UNK
     Route: 048
     Dates: start: 20090509
  10. SENNOSIDE A+B [Concomitant]
     Dosage: UNK
     Route: 048
     Dates: end: 20100618
  11. ALLOPURINOL [Concomitant]
     Dosage: UNK
     Route: 048
     Dates: end: 20100618
  12. DAIKENTYUTO [Concomitant]
     Dosage: UNK
     Route: 048
  13. SILDENAFIL CITRATE [Suspect]
     Indication: PULMONARY HYPERTENSION
     Dosage: 20 MG, 3X/DAY
     Route: 048
     Dates: start: 20090312, end: 20100717
  14. FLOLAN [Concomitant]
     Indication: PULMONARY HYPERTENSION
     Dosage: UNK
     Route: 042

REACTIONS (4)
  - DEATH [None]
  - MALNUTRITION [None]
  - PNEUMOTHORAX [None]
  - PNEUMONIA ASPIRATION [None]
